FAERS Safety Report 16874184 (Version 2)
Quarter: 2019Q4

REPORT INFORMATION
  Report Type: Report from Study
  Country: JP (occurrence: JP)
  Receive Date: 20191001
  Receipt Date: 20191104
  Transmission Date: 20200122
  Serious: Yes (Other)
  Sender: FDA-Public Use
  Company Number: JP-TAKEDA-2019TUS054302

PATIENT
  Age: 72 Year
  Sex: Female
  Weight: 40.6 kg

DRUGS (14)
  1. FEBUXOSTAT. [Suspect]
     Active Substance: FEBUXOSTAT
     Dosage: 60 MILLIGRAM, QD
     Route: 048
     Dates: start: 20180911, end: 20180916
  2. FEBUXOSTAT. [Suspect]
     Active Substance: FEBUXOSTAT
     Dosage: 60 MILLIGRAM, QD
     Route: 048
     Dates: start: 20181031, end: 20181105
  3. FEBUXOSTAT. [Suspect]
     Active Substance: FEBUXOSTAT
     Dosage: 60 MILLIGRAM, QD
     Route: 048
     Dates: start: 20181121, end: 20181126
  4. ONCOVIN [Concomitant]
     Active Substance: VINCRISTINE SULFATE
     Indication: DIFFUSE LARGE B-CELL LYMPHOMA
     Dosage: 1.2 MILLIGRAM
     Route: 065
     Dates: start: 20180703, end: 20181213
  5. FEBUXOSTAT. [Suspect]
     Active Substance: FEBUXOSTAT
     Dosage: 60 MILLIGRAM, QD
     Route: 048
     Dates: start: 20181212, end: 20181218
  6. FEBUXOSTAT. [Suspect]
     Active Substance: FEBUXOSTAT
     Dosage: 60 MILLIGRAM, QD
     Route: 048
     Dates: start: 20180723, end: 20180728
  7. FEBUXOSTAT. [Suspect]
     Active Substance: FEBUXOSTAT
     Indication: TUMOUR LYSIS SYNDROME
     Dosage: 60 MILLIGRAM, QD
     Route: 048
     Dates: start: 20180702, end: 20180707
  8. FEBUXOSTAT. [Suspect]
     Active Substance: FEBUXOSTAT
     Dosage: 60 MILLIGRAM, QD
     Route: 048
     Dates: start: 20180821, end: 20180826
  9. FEBUXOSTAT. [Suspect]
     Active Substance: FEBUXOSTAT
     Dosage: 60 MILLIGRAM, QD
     Route: 048
     Dates: start: 20181002, end: 20181007
  10. ENDOXAN                            /00021102/ [Concomitant]
     Active Substance: CYCLOPHOSPHAMIDE
     Indication: DIFFUSE LARGE B-CELL LYMPHOMA
     Dosage: 680 MILLIGRAM
     Route: 065
     Dates: start: 20180703, end: 20181213
  11. PREDONINE [Concomitant]
     Active Substance: PREDNISOLONE
     Indication: DIFFUSE LARGE B-CELL LYMPHOMA
     Dosage: 60 MILLIGRAM
     Route: 065
     Dates: start: 20180703, end: 20181217
  12. ALOXI [Concomitant]
     Active Substance: PALONOSETRON HYDROCHLORIDE
     Indication: PROPHYLAXIS
     Dosage: 0.8 MILLIGRAM, QD
     Route: 065
     Dates: start: 20180703, end: 20181213
  13. ADRIACIN [Concomitant]
     Active Substance: DOXORUBICIN HYDROCHLORIDE
     Indication: DIFFUSE LARGE B-CELL LYMPHOMA
     Dosage: 45 MILLIGRAM
     Route: 065
     Dates: start: 20180703, end: 20181213
  14. RITUXAN [Concomitant]
     Active Substance: RITUXIMAB
     Indication: DIFFUSE LARGE B-CELL LYMPHOMA
     Dosage: 480 MILLIGRAM
     Route: 065
     Dates: start: 20180703, end: 20180703

REACTIONS (1)
  - Cardiac failure congestive [Recovered/Resolved]

NARRATIVE: CASE EVENT DATE: 20181024
